FAERS Safety Report 25273195 (Version 2)
Quarter: 2025Q3

REPORT INFORMATION
  Report Type: Spontaneous
  Country: US (occurrence: US)
  Receive Date: 20250506
  Receipt Date: 20250709
  Transmission Date: 20251021
  Serious: Yes (Hospitalization)
  Sender: SANOFI AVENTIS
  Company Number: US-SA-2025SA125755

PATIENT
  Age: 43 Year
  Sex: Female

DRUGS (3)
  1. DUPIXENT [Suspect]
     Active Substance: DUPILUMAB
     Indication: Dermatitis atopic
     Dosage: 300 MG, QOW
     Route: 058
     Dates: start: 20250327, end: 20250416
  2. DUPIXENT [Suspect]
     Active Substance: DUPILUMAB
     Indication: Eczema
  3. SODIUM CHLORIDE [Concomitant]
     Active Substance: SODIUM CHLORIDE
     Dates: end: 20250416

REACTIONS (15)
  - Trismus [Unknown]
  - Enzyme level decreased [Unknown]
  - Arthralgia [Unknown]
  - Serum sickness [Unknown]
  - White blood cell count decreased [Recovering/Resolving]
  - Sinus tachycardia [Recovered/Resolved]
  - Ear pain [Recovering/Resolving]
  - Platelet count decreased [Recovering/Resolving]
  - Nasopharyngitis [Recovering/Resolving]
  - Myalgia [Unknown]
  - Pain [Unknown]
  - Chills [Recovering/Resolving]
  - Pyrexia [Unknown]
  - Erythema [Recovering/Resolving]
  - Inappropriate schedule of product administration [Unknown]

NARRATIVE: CASE EVENT DATE: 20250101
